FAERS Safety Report 5108634-6 (Version None)
Quarter: 2006Q3

REPORT INFORMATION
  Report Type: 
  Country: None (occurrence: None)
  Receive Date: 20060915
  Receipt Date: 20060908
  Transmission Date: 20061208
  Serious: Yes (Life-Threatening)
  Sender: FDA-Public Use
  Company Number: DE-2006-026132

PATIENT
  Age: 55 Year
  Sex: Male

DRUGS (1)
  1. ULTRAVIST 300 [Suspect]
     Indication: SCAN BRAIN
     Dosage: 1 DOSE,

REACTIONS (3)
  - ANAPHYLACTOID REACTION [None]
  - CARDIAC ARREST [None]
  - RESPIRATORY ARREST [None]
